FAERS Safety Report 20187895 (Version 3)
Quarter: 2022Q1

REPORT INFORMATION
  Report Type: Spontaneous
  Country: JP (occurrence: JP)
  Receive Date: 20211215
  Receipt Date: 20220117
  Transmission Date: 20220424
  Serious: Yes (Death, Disabling, Other)
  Sender: FDA-Public Use
  Company Number: JP-TAKEDA-2021TJP127335

PATIENT
  Age: 45 Year
  Sex: Female
  Weight: 59 kg

DRUGS (2)
  1. LEUPLIN [Suspect]
     Active Substance: LEUPROLIDE ACETATE
     Indication: Heavy menstrual bleeding
     Dosage: 1.88 MILLIGRAM, Q4WEEKS
     Route: 058
     Dates: start: 20181204, end: 20190509
  2. DIENOGEST [Concomitant]
     Active Substance: DIENOGEST
     Indication: Genital haemorrhage
     Dosage: 1 MILLIGRAM, BID
     Route: 048
     Dates: start: 20191027, end: 202001

REACTIONS (2)
  - Gastrointestinal necrosis [Fatal]
  - Mesenteric artery thrombosis [Fatal]

NARRATIVE: CASE EVENT DATE: 20200408
